FAERS Safety Report 9463259 (Version 11)
Quarter: 2021Q2

REPORT INFORMATION
  Report Type: Report from Study
  Country: GB (occurrence: GB)
  Receive Date: 20130819
  Receipt Date: 20210611
  Transmission Date: 20210717
  Serious: Yes (Hospitalization)
  Sender: FDA-Public Use
  Company Number: GB-PFIZER INC-2013203742

PATIENT
  Age: 38 Year
  Sex: Female
  Weight: 68 kg

DRUGS (15)
  1. EPIRUBICIN HCL [Suspect]
     Active Substance: EPIRUBICIN HYDROCHLORIDE
     Indication: HER2 POSITIVE BREAST CANCER
     Dosage: 190 MG MOST RECENT DOSE PRIOR TO AE 25/JUN/2013
     Route: 042
     Dates: start: 20130514, end: 20130625
  2. FLUOROURACIL. [Suspect]
     Active Substance: FLUOROURACIL
     Indication: HER2 POSITIVE BREAST CANCER
     Dosage: MOST RECENT DOSE PRIOR TO AE 25/JUN/2013
     Route: 042
     Dates: start: 20130514, end: 20130625
  3. TRASTUZUMAB. [Suspect]
     Active Substance: TRASTUZUMAB
     Indication: HER2 POSITIVE BREAST CANCER
     Dosage: MOST RECENT DOSE ON 16/JUL/2013.
     Route: 041
     Dates: start: 20130716
  4. DOCETAXEL. [Suspect]
     Active Substance: DOCETAXEL
     Indication: HER2 POSITIVE BREAST CANCER
     Dosage: 190 MG, EVERY 3 WEEKS
     Route: 042
     Dates: start: 20130716
  5. ONDANSETRON [Concomitant]
     Active Substance: ONDANSETRON
     Dosage: 16 MG
     Route: 065
     Dates: start: 20130514
  6. DEXAMETHASONE. [Concomitant]
     Active Substance: DEXAMETHASONE
     Dosage: 40 MG
     Dates: start: 20130715, end: 20130717
  7. PLACEBO [Suspect]
     Active Substance: UNSPECIFIED INGREDIENT
     Dosage: UNK
  8. PEGFILGRASTIM [Concomitant]
     Active Substance: PEGFILGRASTIM
     Dosage: 6 MG
     Route: 065
     Dates: start: 20130515
  9. CYCLOPHOSPHAMIDE. [Suspect]
     Active Substance: CYCLOPHOSPHAMIDE
     Indication: HER2 POSITIVE BREAST CANCER
     Dosage: MOST RECENT DOSE PRIOR TO AE 25/JUN/2013
     Route: 042
     Dates: start: 20130514, end: 20130625
  10. DOMPERIDONE [Concomitant]
     Active Substance: DOMPERIDONE
     Dosage: 40 MG
     Route: 065
     Dates: start: 20130715
  11. PARACETAMOL [Concomitant]
     Active Substance: ACETAMINOPHEN
     Dosage: 4000 MG
     Route: 065
     Dates: start: 20130717
  12. PLACEBO [Suspect]
     Active Substance: UNSPECIFIED INGREDIENT
     Indication: HER2 POSITIVE BREAST CANCER
     Dosage: UNK, EVERY 3 WEEKS
     Route: 042
     Dates: start: 20130716
  13. DEXAMETHASONE. [Concomitant]
     Active Substance: DEXAMETHASONE
     Dosage: UNK
     Dates: start: 20130514
  14. DOMPERIDONE [Concomitant]
     Active Substance: DOMPERIDONE
     Dosage: 80 MG
     Route: 065
     Dates: start: 20130514
  15. DEXAMETHASONE. [Concomitant]
     Active Substance: DEXAMETHASONE
     Dosage: 40 MG
     Route: 065
     Dates: start: 20130715

REACTIONS (5)
  - Neutropenia [Recovered/Resolved]
  - Fatigue [Recovered/Resolved]
  - Myalgia [Unknown]
  - Arthralgia [Unknown]
  - Vomiting [Recovered/Resolved]

NARRATIVE: CASE EVENT DATE: 20130626
